FAERS Safety Report 7297862-X (Version None)
Quarter: 2011Q1

REPORT INFORMATION
  Report Type: 
  Country: None (occurrence: None)
  Receive Date: 20110217
  Receipt Date: 20101208
  Transmission Date: 20110831
  Serious: No
  Sender: FDA-Public Use
  Company Number: US-KINGPHARMUSA00001-K201001496

PATIENT
  Age: 42 Year
  Sex: Female

DRUGS (2)
  1. FLECTOR [Suspect]
     Dosage: 1 PATCH, SINGLE
     Route: 061
     Dates: start: 20101208, end: 20101208
  2. CARDIZEM [Concomitant]

REACTIONS (5)
  - SWOLLEN TONGUE [None]
  - DIZZINESS [None]
  - DYSPHAGIA [None]
  - DRY MOUTH [None]
  - BLOOD PRESSURE DECREASED [None]
